FAERS Safety Report 18717694 (Version 2)
Quarter: 2022Q4

REPORT INFORMATION
  Report Type: Spontaneous
  Country: FR (occurrence: FR)
  Receive Date: 20210108
  Receipt Date: 20221118
  Transmission Date: 20230113
  Serious: Yes (Other)
  Sender: FDA-Public Use
  Company Number: None

PATIENT
  Age: 42 Year
  Sex: Female

DRUGS (5)
  1. LAMOTRIGINE [Suspect]
     Active Substance: LAMOTRIGINE
     Indication: Product used for unknown indication
     Dosage: UNK
     Route: 065
     Dates: start: 20031002, end: 20040618
  2. CLONAZEPAM [Suspect]
     Active Substance: CLONAZEPAM
     Indication: Epilepsy
     Dosage: QD (5 TO 10 DROPS THE EVENING)
     Route: 048
     Dates: start: 20031002, end: 20040618
  3. CLOBAZAM [Suspect]
     Active Substance: CLOBAZAM
     Indication: Epilepsy
     Dosage: ONE TO THRICE BY DAY
     Route: 048
     Dates: start: 20031002, end: 20040618
  4. PHENOBARBITAL [Suspect]
     Active Substance: PHENOBARBITAL
     Indication: Epilepsy
     Dosage: TWICE IN THE MORNING, THRICE IN THE EVENING
     Route: 048
     Dates: start: 20031002, end: 20040618
  5. VALPROATE SODIUM [Suspect]
     Active Substance: VALPROATE SODIUM
     Indication: Epilepsy
     Dosage: 1500 MG, UNKNOWN (ONE IN THE MORNING, TWO IN THE EVENING)
     Route: 048
     Dates: start: 20031002, end: 20040618

REACTIONS (2)
  - Epilepsy [Unknown]
  - Exposure during pregnancy [Unknown]

NARRATIVE: CASE EVENT DATE: 20031201
